FAERS Safety Report 25538928 (Version 3)
Quarter: 2025Q3

REPORT INFORMATION
  Report Type: Spontaneous
  Country: RU (occurrence: RU)
  Receive Date: 20250710
  Receipt Date: 20250821
  Transmission Date: 20251020
  Serious: Yes (Other)
  Sender: NOVARTIS
  Company Number: RU-002147023-NVSC2025RU107307

PATIENT
  Age: 44 Year
  Sex: Male

DRUGS (2)
  1. DABRAFENIB [Suspect]
     Active Substance: DABRAFENIB
     Indication: Metastatic malignant melanoma
     Dosage: 150 MG, BID
     Route: 048
     Dates: start: 20230523
  2. TRAMETINIB [Suspect]
     Active Substance: TRAMETINIB
     Indication: Metastatic malignant melanoma
     Dosage: 2 MG, QD
     Route: 048
     Dates: start: 20230523

REACTIONS (6)
  - Haemorrhagic cyst [Recovered/Resolved]
  - Cerebellar cyst [Recovered/Resolved]
  - Metastases to central nervous system [Recovered/Resolved]
  - Lymphadenopathy [Recovered/Resolved]
  - Malignant mesenteric neoplasm [Recovered/Resolved]
  - Small intestine ulcer [Recovered/Resolved]

NARRATIVE: CASE EVENT DATE: 20231103
